FAERS Safety Report 24648848 (Version 1)
Quarter: 2024Q4

REPORT INFORMATION
  Report Type: Spontaneous
  Country: CN (occurrence: CN)
  Receive Date: 20241121
  Receipt Date: 20241121
  Transmission Date: 20250114
  Serious: Yes (Hospitalization)
  Sender: FRESENIUS KABI
  Company Number: CN-FreseniusKabi-FK202417223

PATIENT
  Age: 61 Year
  Sex: Male

DRUGS (1)
  1. LACTULOSE [Suspect]
     Active Substance: LACTULOSE
     Indication: Bowel movement irregularity
     Dosage: FORM OF ADMINISTRATION-ORAL SOLUTION
     Dates: start: 20241108, end: 20241111

REACTIONS (3)
  - Rash erythematous [Recovering/Resolving]
  - Anaphylactic shock [Recovering/Resolving]
  - Blood pressure abnormal [Recovering/Resolving]

NARRATIVE: CASE EVENT DATE: 20241108
